FAERS Safety Report 10576688 (Version 1)
Quarter: 2014Q4

REPORT INFORMATION
  Report Type: Spontaneous
  Country: US (occurrence: None)
  Receive Date: 20141110
  Receipt Date: 20141110
  Transmission Date: 20150529
  Serious: Yes (Disabling)
  Sender: FDA-Public Use
  Company Number: None

PATIENT
  Age: 57 Year
  Sex: Female
  Weight: 58.97 kg

DRUGS (2)
  1. MEVACOR [Suspect]
     Active Substance: LOVASTATIN
     Indication: BLOOD CHOLESTEROL INCREASED
     Dosage: 1 PILL
     Route: 048
     Dates: start: 20140616, end: 20141107
  2. CYMBALTA [Suspect]
     Active Substance: DULOXETINE HYDROCHLORIDE
     Indication: NEURALGIA
     Dosage: 1 PILL
     Route: 048
     Dates: start: 20140714, end: 20141107

REACTIONS (7)
  - Drug ineffective [None]
  - Influenza [None]
  - Blood glucose increased [None]
  - Malaise [None]
  - Arthralgia [None]
  - Myalgia [None]
  - Weight increased [None]

NARRATIVE: CASE EVENT DATE: 20141107
